FAERS Safety Report 9552986 (Version 1)
Quarter: 2013Q3

REPORT INFORMATION
  Report Type: Spontaneous
  Country: US (occurrence: None)
  Receive Date: 20130724
  Receipt Date: 20130724
  Transmission Date: 20140515
  Serious: Yes (Hospitalization)
  Sender: FDA-Public Use
  Company Number: PHEH2013US003340

PATIENT
  Age: 95 Year
  Sex: Female

DRUGS (12)
  1. GLEEVEC (IMATINIB) TABLET, 100MG [Suspect]
     Indication: CHRONIC MYELOID LEUKAEMIA
     Route: 048
  2. SYNTHROID (LEVOTHYROXINE SODIUM) [Concomitant]
  3. ENALAPRIL [Concomitant]
  4. AMLODIPINE (AMLODIPINE) [Concomitant]
  5. MAGNESIUM (MAGNESIUM) [Concomitant]
  6. PRILOSEC [Concomitant]
  7. OMEPRAZOLE (OMEPRAZOLE) [Concomitant]
  8. IMODIUM ADVANCED (LOPERAMIDE HYDROCHLORIDE, SIMETICONE) [Concomitant]
  9. METOPROLOL TARTRATE (METOPROLOL TARTRATE) [Concomitant]
  10. LEVOTHYROXINE (LEVOTHYROXINE) [Concomitant]
  11. FERROUS SULPHATE (FERROUS SULFATE) [Concomitant]
  12. ZOFRAN (ONDANSETRON HYDROCHLORIDE) [Concomitant]

REACTIONS (1)
  - Pulmonary oedema [None]
